FAERS Safety Report 25056323 (Version 1)
Quarter: 2025Q1

REPORT INFORMATION
  Report Type: Spontaneous
  Country: US (occurrence: US)
  Receive Date: 20250310
  Receipt Date: 20250310
  Transmission Date: 20250408
  Serious: No
  Sender: ALEXION PHARMACEUTICALS
  Company Number: US-AstraZeneca-CH-00820121A

PATIENT

DRUGS (1)
  1. FARXIGA [Suspect]
     Active Substance: DAPAGLIFLOZIN PROPANEDIOL
     Route: 065

REACTIONS (5)
  - Diabetic nephropathy [Unknown]
  - Vertigo [Unknown]
  - Dizziness [Unknown]
  - Gastrointestinal disorder [Unknown]
  - Product use issue [Unknown]
